FAERS Safety Report 18431142 (Version 1)
Quarter: 2020Q4

REPORT INFORMATION
  Report Type: Spontaneous
  Country: US (occurrence: US)
  Receive Date: 20201027
  Receipt Date: 20201027
  Transmission Date: 20210114
  Serious: Yes (Hospitalization)
  Sender: FDA-Public Use
  Company Number: None

PATIENT
  Sex: Male

DRUGS (2)
  1. PROMACTA [Concomitant]
     Active Substance: ELTROMBOPAG OLAMINE
  2. CYCLOSPORINE MOD 50MG CAPS [Suspect]
     Active Substance: CYCLOSPORINE
     Route: 048
     Dates: start: 20200214

REACTIONS (2)
  - Blood calcium increased [None]
  - Chest pain [None]
